FAERS Safety Report 6349661-0 (Version None)
Quarter: 2009Q3

REPORT INFORMATION
  Report Type: 
  Country: None (occurrence: None)
  Receive Date: 20090911
  Receipt Date: 20090901
  Transmission Date: 20100115
  Serious: Yes (Other)
  Sender: FDA-Public Use
  Company Number: PHHY2009CA37620

PATIENT
  Sex: Male

DRUGS (1)
  1. ZOMETA [Suspect]
     Indication: METASTATIC CARCINOID TUMOUR
     Dosage: 4 MG, UNK
     Route: 042
     Dates: start: 20081230, end: 20081230

REACTIONS (1)
  - CARDIAC OPERATION [None]
